FAERS Safety Report 8265662-X (Version None)
Quarter: 2012Q2

REPORT INFORMATION
  Report Type: 
  Country: None (occurrence: None)
  Receive Date: 20120406
  Receipt Date: 20120402
  Transmission Date: 20120825
  Serious: Yes (Other)
  Sender: FDA-Public Use
  Company Number: US-ABBOTT-11P-163-0886042-00

PATIENT
  Age: 66 Year
  Sex: Male

DRUGS (6)
  1. HUMIRA [Suspect]
     Indication: PSORIASIS
     Dates: start: 20110601
  2. BENICAR [Concomitant]
     Dosage: DAILY DOSE: 20MG
  3. METOPROLOL TARTRATE [Concomitant]
     Indication: BLOOD PRESSURE
  4. BENICAR [Concomitant]
     Indication: BLOOD PRESSURE
  5. METOPROLOL TARTRATE [Concomitant]
     Dosage: DAILY DOSE: 20MG
  6. ASPIRIN [Concomitant]
     Indication: PRODUCT USED FOR UNKNOWN INDICATION

REACTIONS (8)
  - GASTRIC HAEMORRHAGE [None]
  - PSORIASIS [None]
  - RED BLOOD CELL COUNT DECREASED [None]
  - FATIGUE [None]
  - DIZZINESS [None]
  - FAECES DISCOLOURED [None]
  - DRUG EFFECT DECREASED [None]
  - DRY SKIN [None]
